FAERS Safety Report 11387285 (Version 2)
Quarter: 2015Q3

REPORT INFORMATION
  Report Type: Spontaneous
  Country: JP (occurrence: JP)
  Receive Date: 20150817
  Receipt Date: 20150819
  Transmission Date: 20151125
  Serious: Yes (Other)
  Sender: FDA-Public Use
  Company Number: JP-EMD SERONO-8037795

PATIENT
  Age: 42 Year
  Sex: Female

DRUGS (1)
  1. GONAL-F [Suspect]
     Active Substance: FOLLITROPIN
     Indication: OVULATION INDUCTION
     Route: 058

REACTIONS (2)
  - Benign hydatidiform mole [Unknown]
  - Gestational hypertension [Unknown]
